FAERS Safety Report 6348542-6 (Version None)
Quarter: 2009Q3

REPORT INFORMATION
  Report Type: 
  Country: None (occurrence: None)
  Receive Date: 20090911
  Receipt Date: 20090903
  Transmission Date: 20100115
  Serious: Yes (Death)
  Sender: FDA-Public Use
  Company Number: US-JNJFOC-20090902742

PATIENT
  Sex: Male
  Weight: 97.16 kg

DRUGS (8)
  1. FENTANYL [Suspect]
     Indication: DRUG USE FOR UNKNOWN INDICATION
     Route: 062
  2. ALPRAZOLAM [Suspect]
     Indication: DRUG USE FOR UNKNOWN INDICATION
  3. DIAZEPAM [Suspect]
     Indication: DRUG USE FOR UNKNOWN INDICATION
  4. NORDIAZEPAM [Suspect]
     Indication: DRUG USE FOR UNKNOWN INDICATION
  5. HYDROCODONE [Suspect]
     Indication: DRUG USE FOR UNKNOWN INDICATION
  6. METOCLOPRAMIDE [Suspect]
     Indication: DRUG USE FOR UNKNOWN INDICATION
  7. MIRTAZAPINE [Suspect]
     Indication: DRUG USE FOR UNKNOWN INDICATION
  8. PROMETHAZINE [Suspect]
     Indication: DRUG USE FOR UNKNOWN INDICATION

REACTIONS (9)
  - BRAIN OEDEMA [None]
  - DRUG TOXICITY [None]
  - ECCHYMOSIS [None]
  - ESCHAR [None]
  - HAEMATURIA [None]
  - HYPERTENSIVE HEART DISEASE [None]
  - PULMONARY OEDEMA [None]
  - RENAL COLIC [None]
  - SUDDEN DEATH [None]
